FAERS Safety Report 23064603 (Version 1)
Quarter: 2023Q4

REPORT INFORMATION
  Report Type: Report from Study
  Country: NO (occurrence: NO)
  Receive Date: 20231013
  Receipt Date: 20231013
  Transmission Date: 20240110
  Serious: Yes (Hospitalization, Other)
  Sender: FDA-Public Use
  Company Number: NO-Stemline Therapeutics, Inc.-2023ST002757

PATIENT
  Age: 76 Year
  Sex: Male

DRUGS (15)
  1. DEXAMETHASONE [Suspect]
     Active Substance: DEXAMETHASONE
     Indication: Plasma cell myeloma
     Dosage: DAY 1, 2, 8, 9, 15, 16
     Route: 065
     Dates: start: 20230713, end: 20230728
  2. LENALIDOMIDE [Suspect]
     Active Substance: LENALIDOMIDE
     Indication: Plasma cell myeloma
     Dosage: 15 MG, DAY 1-21
     Route: 065
     Dates: start: 20230713, end: 20230802
  3. SELINEXOR [Suspect]
     Active Substance: SELINEXOR
     Indication: Plasma cell myeloma
     Dosage: 40MG, DAY 1 TO DAY 13 OF A 28 DAY CYCLE
     Route: 065
     Dates: start: 20230713, end: 20230803
  4. SELINEXOR [Suspect]
     Active Substance: SELINEXOR
     Dosage: 40MG, DAY 1, 8, 15, 22
     Route: 065
     Dates: start: 20230713, end: 20230803
  5. ATACAND [Concomitant]
     Active Substance: CANDESARTAN CILEXETIL
     Indication: Hypertension
     Dosage: 4MGX1
     Route: 065
     Dates: start: 2010
  6. PRAVASTATIN [Concomitant]
     Active Substance: PRAVASTATIN
     Indication: Blood cholesterol increased
     Dosage: 20MGX1
     Route: 065
     Dates: start: 2022
  7. ELIQUIS [Concomitant]
     Active Substance: APIXABAN
     Indication: Thrombosis prophylaxis
     Dosage: 5MGX2
     Route: 065
     Dates: start: 202305
  8. EMEND [Concomitant]
     Active Substance: APREPITANT
     Indication: Prophylaxis
     Dosage: 80 MG, DAY 2,3,9,10,16,17
     Route: 065
  9. EMEND [Concomitant]
     Active Substance: APREPITANT
     Dosage: DAY 1, 8, 15
     Route: 065
  10. CETIRIZINE [Concomitant]
     Active Substance: CETIRIZINE HYDROCHLORIDE
     Indication: Product used for unknown indication
     Dosage: 10MGX1
     Route: 065
  11. VALTREX [Concomitant]
     Active Substance: VALACYCLOVIR HYDROCHLORIDE
     Indication: Antiviral prophylaxis
     Dosage: 250MGX2
     Route: 065
     Dates: start: 20230515
  12. ZOMETA [Concomitant]
     Active Substance: ZOLEDRONIC ACID
     Indication: Product used for unknown indication
     Route: 065
  13. ZOFRAN [Concomitant]
     Active Substance: ONDANSETRON HYDROCHLORIDE
     Indication: Product used for unknown indication
     Dosage: 8MG, DAY 1,2,8,9,15,16
     Route: 065
  14. FUROSEMIDE [Concomitant]
     Active Substance: FUROSEMIDE
     Indication: Oedema
     Dosage: 20MGX1
     Route: 065
     Dates: start: 20230607
  15. CALCIUM CARBONATE\CHOLECALCIFEROL [Concomitant]
     Active Substance: CALCIUM CARBONATE\CHOLECALCIFEROL
     Indication: Product used for unknown indication
     Dosage: 1000/800 X 1
     Route: 065

REACTIONS (5)
  - Respiratory alkalosis [Unknown]
  - Hypokalaemia [Unknown]
  - Pneumonia bacterial [Recovered/Resolved]
  - Anaemia [Unknown]
  - Parainfluenzae virus infection [Unknown]

NARRATIVE: CASE EVENT DATE: 20230725
